FAERS Safety Report 23632964 (Version 4)
Quarter: 2024Q2

REPORT INFORMATION
  Report Type: Report from Study
  Country: US (occurrence: US)
  Receive Date: 20240314
  Receipt Date: 20240603
  Transmission Date: 20240716
  Serious: Yes (Death, Other)
  Sender: FDA-Public Use
  Company Number: US-UCBSA-2023020979

PATIENT
  Age: 9 Year
  Sex: Male
  Weight: 32 kg

DRUGS (5)
  1. FINTEPLA [Suspect]
     Active Substance: FENFLURAMINE
     Indication: Simple partial seizures
     Dosage: 4.8 MILLILITER, 2X/DAY (BID)
     Route: 048
     Dates: start: 20220526
  2. FINTEPLA [Suspect]
     Active Substance: FENFLURAMINE
     Indication: Epilepsy
     Dosage: 4.8 MILLILITER, 2X/DAY (BID), ABOUT A YEAR A HALF AGO
     Route: 048
  3. FINTEPLA [Suspect]
     Active Substance: FENFLURAMINE
     Indication: Off label use
     Dosage: 4.8 MILLILITER, 2X/DAY (BID)
     Route: 048
  4. FINTEPLA [Suspect]
     Active Substance: FENFLURAMINE
     Indication: Seizure
     Dosage: UNK
     Route: 048
  5. FINTEPLA [Suspect]
     Active Substance: FENFLURAMINE
     Indication: Lennox-Gastaut syndrome
     Dosage: 5.4 MILLILITER, 2X/DAY (BID)
     Route: 048
     Dates: end: 2024

REACTIONS (8)
  - Death [Fatal]
  - Tricuspid valve incompetence [Unknown]
  - Viral infection [Unknown]
  - Urinary tract infection [Not Recovered/Not Resolved]
  - Atrial septal defect [Unknown]
  - Hospice care [Not Recovered/Not Resolved]
  - Off label use [Unknown]
  - Drug ineffective [Unknown]

NARRATIVE: CASE EVENT DATE: 20230421
